FAERS Safety Report 6568281-6 (Version None)
Quarter: 2010Q1

REPORT INFORMATION
  Report Type: 
  Country: None (occurrence: None)
  Receive Date: 20100128
  Receipt Date: 20100122
  Transmission Date: 20100710
  Serious: Yes (Death, Other)
  Sender: FDA-Public Use
  Company Number: 2010US000175

PATIENT
  Age: 21 Year
  Sex: Female

DRUGS (7)
  1. VIBATIV [Suspect]
     Indication: BACTERAEMIA
     Dosage: IV NOS
     Route: 042
     Dates: start: 20091119, end: 20091216
  2. VIBATIV [Suspect]
     Indication: OSTEOMYELITIS
     Dosage: IV NOS
     Route: 042
     Dates: start: 20091119, end: 20091216
  3. VIBATIV [Suspect]
     Indication: PNEUMONIA
     Dosage: IV NOS
     Route: 042
     Dates: start: 20091119, end: 20091216
  4. VIBATIV [Suspect]
     Indication: STAPHYLOCOCCAL INFECTION
     Dosage: IV NOS
     Route: 042
     Dates: start: 20091119, end: 20091216
  5. VANCOMYCIN [Concomitant]
  6. DAPTOMYCIN (DAPTOMYCIN) [Concomitant]
  7. CLINDAMYCIN HCL [Concomitant]

REACTIONS (4)
  - DISEASE PROGRESSION [None]
  - OXYGEN CONSUMPTION DECREASED [None]
  - PNEUMONIA [None]
  - PULMONARY CAVITATION [None]
